FAERS Safety Report 17752720 (Version 1)
Quarter: 2020Q2

REPORT INFORMATION
  Report Type: Spontaneous
  Country: US (occurrence: US)
  Receive Date: 20200506
  Receipt Date: 20200506
  Transmission Date: 20200714
  Serious: No
  Sender: FDA-Public Use
  Company Number: US-ROCHE-2436836

PATIENT
  Sex: Male

DRUGS (1)
  1. ESBRIET [Suspect]
     Active Substance: PIRFENIDONE
     Indication: PRODUCT USED FOR UNKNOWN INDICATION
     Dosage: 1 TAB THEN 2 TABLET
     Route: 048

REACTIONS (5)
  - Fatigue [Unknown]
  - Sunburn [Unknown]
  - Pain [Unknown]
  - Unevaluable event [Unknown]
  - Movement disorder [Unknown]
